FAERS Safety Report 24171725 (Version 1)
Quarter: 2024Q3

REPORT INFORMATION
  Report Type: Spontaneous
  Country: ES (occurrence: ES)
  Receive Date: 20240805
  Receipt Date: 20240805
  Transmission Date: 20241016
  Serious: Yes (Life-Threatening)
  Sender: JOHNSON AND JOHNSON
  Company Number: None

PATIENT
  Age: 58 Year
  Sex: Female
  Weight: 61.8 kg

DRUGS (3)
  1. SPRAVATO [Suspect]
     Active Substance: ESKETAMINE
     Indication: Depression
     Dosage: ESKETAMINE 56 MG MONDAY AND THURSDAY FROM 02/09/2024 TO 02/16/2024 (REPORTED AS 112 MG)
     Dates: start: 20240209, end: 20240216
  2. SPRAVATO [Suspect]
     Active Substance: ESKETAMINE
     Dosage: 84MG MONDAY AND THURSDAY FROM 02/23/2024 TO 03/01/2024 (REPORTED AS 168 MG)
     Dates: start: 20240223, end: 20240301
  3. SPRAVATO [Suspect]
     Active Substance: ESKETAMINE
     Dosage: ESKETAMINE 56MG MONDAY AND THURSDAY FROM 02/09/2024 TO 02/16/2024, THEN 84MG MONDAY AND THURSDAY FRO
     Dates: start: 20240315, end: 20240612

REACTIONS (3)
  - Hallucination, visual [Recovered/Resolved]
  - Suicidal ideation [Unknown]
  - Drug ineffective [Unknown]

NARRATIVE: CASE EVENT DATE: 20240612
